FAERS Safety Report 18188322 (Version 1)
Quarter: 2020Q3

REPORT INFORMATION
  Report Type: Report from Study
  Country: GB (occurrence: GB)
  Receive Date: 20200824
  Receipt Date: 20200824
  Transmission Date: 20201103
  Serious: Yes (Hospitalization, Other)
  Sender: FDA-Public Use
  Company Number: GB-JNJFOC-20200819361

PATIENT

DRUGS (6)
  1. ACICLOVIR [Concomitant]
     Active Substance: ACYCLOVIR
     Indication: PROPHYLAXIS
  2. POMALIDOMIDE [Suspect]
     Active Substance: POMALIDOMIDE
     Indication: PRIMARY AMYLOIDOSIS
     Route: 065
  3. DARZALEX [Suspect]
     Active Substance: DARATUMUMAB
     Indication: PRIMARY AMYLOIDOSIS
     Route: 065
  4. LENALIDOMIDE [Suspect]
     Active Substance: LENALIDOMIDE
     Indication: PRIMARY AMYLOIDOSIS
     Route: 065
  5. DARZALEX [Suspect]
     Active Substance: DARATUMUMAB
     Route: 065
  6. COTRIMOXAZOLE [Concomitant]
     Active Substance: SULFAMETHOXAZOLE\TRIMETHOPRIM
     Indication: PROPHYLAXIS

REACTIONS (17)
  - Anaemia [Unknown]
  - Hypertension [Unknown]
  - Upper respiratory tract infection [Unknown]
  - Fluid overload [Unknown]
  - Diarrhoea [Unknown]
  - Lower respiratory tract infection [Unknown]
  - Thrombocytopenia [Unknown]
  - Tonsillitis [Unknown]
  - Off label use [Unknown]
  - Orthostatic hypotension [Unknown]
  - Fall [Unknown]
  - Product use in unapproved indication [Unknown]
  - Infusion related reaction [Unknown]
  - Fatigue [Unknown]
  - Vision blurred [Unknown]
  - Urinary tract infection [Unknown]
  - Insomnia [Unknown]
